FAERS Safety Report 6161424-8 (Version None)
Quarter: 2009Q2

REPORT INFORMATION
  Report Type: 
  Country: None (occurrence: None)
  Receive Date: 20090421
  Receipt Date: 20090417
  Transmission Date: 20091009
  Serious: Yes (Hospitalization)
  Sender: FDA-Public Use
  Company Number: JP-BRISTOL-MYERS SQUIBB COMPANY-14591929

PATIENT
  Age: 80 Year
  Sex: Male

DRUGS (2)
  1. AVAPRO [Suspect]
     Indication: HYPERTENSION
     Dates: start: 20090303, end: 20090317
  2. GENINAX [Suspect]
     Dates: start: 20090312, end: 20090317

REACTIONS (1)
  - HYPOGLYCAEMIA [None]
